FAERS Safety Report 5283531-4 (Version None)
Quarter: 2007Q1

REPORT INFORMATION
  Report Type: 
  Country: None (occurrence: None)
  Receive Date: 20061226
  Receipt Date: 20060930
  Transmission Date: 20070707
  Serious: No
  Sender: FDA-Public Use
  Company Number: 2006PV022330

PATIENT
  Age: 66 Year
  Sex: Male
  Weight: 110.9045 kg

DRUGS (19)
  1. SYMLIN [Suspect]
     Indication: DIABETES MELLITUS NON-INSULIN-DEPENDENT
     Dosage: SEE IMAGE
     Route: 058
     Dates: start: 20060930, end: 20060101
  2. SYMLIN [Suspect]
     Indication: DIABETES MELLITUS NON-INSULIN-DEPENDENT
     Dosage: SEE IMAGE
     Route: 058
     Dates: start: 20060930, end: 20061001
  3. SYMLIN [Suspect]
     Indication: DIABETES MELLITUS NON-INSULIN-DEPENDENT
     Dosage: SEE IMAGE
     Route: 058
     Dates: start: 20060930
  4. SYMLIN [Suspect]
     Indication: DIABETES MELLITUS NON-INSULIN-DEPENDENT
     Dosage: SEE IMAGE
     Route: 058
     Dates: start: 20061002
  5. SYMLIN [Suspect]
     Indication: DIABETES MELLITUS NON-INSULIN-DEPENDENT
     Dosage: SEE IMAGE
     Route: 058
     Dates: start: 20061019
  6. SYMLIN [Suspect]
  7. LANTUS [Concomitant]
  8. NOVOLOG [Concomitant]
  9. BYETTA [Concomitant]
  10. PLAVIX [Concomitant]
  11. TOPROL-XL [Concomitant]
  12. LANOXIN [Concomitant]
  13. DETROL LA [Concomitant]
  14. DIOVAN [Concomitant]
  15. PROTOCHOL [Concomitant]
  16. POTASSIUM ACETATE [Concomitant]
  17. SPIRONOLACTONE [Concomitant]
  18. FUROSEMIDE [Concomitant]
  19. STOOL SOFTENER [Concomitant]

REACTIONS (6)
  - BLOOD GLUCOSE DECREASED [None]
  - BLOOD GLUCOSE INCREASED [None]
  - CONSTIPATION [None]
  - INJECTION SITE ERYTHEMA [None]
  - INJECTION SITE PAIN [None]
  - WEIGHT INCREASED [None]
